FAERS Safety Report 10163040 (Version 1)
Quarter: 2014Q2

REPORT INFORMATION
  Report Type: Spontaneous
  Country: US (occurrence: US)
  Receive Date: 20140509
  Receipt Date: 20140509
  Transmission Date: 20141212
  Serious: No
  Sender: FDA-Public Use
  Company Number: US-PFIZER INC-2014123738

PATIENT
  Age: 79 Year
  Sex: Female

DRUGS (12)
  1. NORVASC [Suspect]
     Dosage: UNK
  2. PREDNISONE [Suspect]
     Dosage: UNK
  3. PROMETHAZINE HCL [Suspect]
     Dosage: UNK
  4. BIAXIN [Suspect]
     Dosage: UNK
  5. CEPHALEXIN [Suspect]
     Dosage: UNK
  6. CIPRO [Suspect]
     Dosage: UNK
  7. CODEINE [Suspect]
     Dosage: UNK
  8. COZAAR [Suspect]
     Dosage: UNK
  9. FOSAMAX [Suspect]
     Dosage: UNK
  10. LEVAQUIN [Suspect]
     Dosage: UNK
  11. LOTREL [Suspect]
     Dosage: UNK
  12. PLAQUENIL [Suspect]
     Dosage: UNK

REACTIONS (1)
  - Drug hypersensitivity [Unknown]
